FAERS Safety Report 23341783 (Version 1)
Quarter: 2023Q4

REPORT INFORMATION
  Report Type: Spontaneous
  Country: US (occurrence: None)
  Receive Date: 20231226
  Receipt Date: 20231226
  Transmission Date: 20240110
  Serious: Yes (Hospitalization)
  Sender: FDA-Public Use
  Company Number: None

PATIENT
  Age: 78 Year
  Sex: Male

DRUGS (2)
  1. FUROSEMIDE [Suspect]
     Active Substance: FUROSEMIDE
     Dates: start: 20230726
  2. LOSARTAN [Suspect]
     Active Substance: LOSARTAN

REACTIONS (6)
  - Syncope [None]
  - Fall [None]
  - Orthostatic hypotension [None]
  - Weight decreased [None]
  - Back pain [None]
  - Spinal compression fracture [None]

NARRATIVE: CASE EVENT DATE: 20230818
